FAERS Safety Report 11875015 (Version 1)
Quarter: 2015Q4

REPORT INFORMATION
  Report Type: Spontaneous
  Country: US (occurrence: None)
  Receive Date: 20151228
  Receipt Date: 20151228
  Transmission Date: 20160305
  Serious: Yes (Other)
  Sender: FDA-Public Use
  Company Number: None

PATIENT
  Age: 71 Year
  Sex: Female

DRUGS (5)
  1. LEVOTHYROXINE. [Concomitant]
     Active Substance: LEVOTHYROXINE
  2. ALBUTER INHALER [Concomitant]
  3. TRACLEER [Suspect]
     Active Substance: BOSENTAN
     Indication: PULMONARY ARTERIAL HYPERTENSION
     Route: 048
     Dates: start: 20151130, end: 20151207
  4. SILDENAFIL. [Concomitant]
     Active Substance: SILDENAFIL
  5. QVAR INHALER [Concomitant]

REACTIONS (2)
  - Dyspnoea exertional [None]
  - Oedema peripheral [None]

NARRATIVE: CASE EVENT DATE: 20151224
